FAERS Safety Report 5616109-0 (Version None)
Quarter: 2008Q1

REPORT INFORMATION
  Report Type: 
  Country: None (occurrence: None)
  Receive Date: 20080201
  Receipt Date: 20080122
  Transmission Date: 20080703
  Serious: Yes (Hospitalization)
  Sender: FDA-Public Use
  Company Number: B0505451A

PATIENT
  Age: 22 Year
  Sex: Female

DRUGS (4)
  1. ABACAVIR SULFATE [Suspect]
     Indication: HIV INFECTION
     Dates: start: 20061001
  2. TENOFOVIR (FORMULATION UNKNOWN) (TENOFOVIR) [Suspect]
     Indication: HIV INFECTION
     Dates: start: 20061001
  3. RITONAVIR (FORMULATION UNKNOWN) (RITONAVIR) [Suspect]
     Indication: HIV INFECTION
     Dates: start: 20061001
  4. ATAZANAVIR (FORMULATION UNKNOWN) (ATAZANAVIR) [Suspect]
     Indication: HIV INFECTION
     Dates: start: 20061001

REACTIONS (4)
  - FACIAL PALSY [None]
  - IMMUNE RECONSTITUTION SYNDROME [None]
  - JC VIRUS INFECTION [None]
  - PROGRESSIVE MULTIFOCAL LEUKOENCEPHALOPATHY [None]
